FAERS Safety Report 22303391 (Version 2)
Quarter: 2023Q2

REPORT INFORMATION
  Report Type: Report from Study
  Country: US (occurrence: US)
  Receive Date: 20230510
  Receipt Date: 20230518
  Transmission Date: 20230722
  Serious: Yes (Hospitalization)
  Sender: FDA-Public Use
  Company Number: US-ABBVIE-4302592

PATIENT
  Sex: Female

DRUGS (5)
  1. SKYRIZI [Suspect]
     Active Substance: RISANKIZUMAB-RZAA
     Indication: Crohn^s disease
     Dosage: FORM STRENGTH 360 MG?360MG/2.4M?WEEK 12?ONE IN ONCE FREQUENCY
     Route: 058
     Dates: start: 20230126, end: 20230126
  2. SKYRIZI [Suspect]
     Active Substance: RISANKIZUMAB-RZAA
     Dosage: FORM STRENGTH 360 MG
     Route: 058
  3. SKYRIZI [Suspect]
     Active Substance: RISANKIZUMAB-RZAA
     Indication: Crohn^s disease
     Dosage: 1ST INFUSION
     Route: 042
  4. SKYRIZI [Suspect]
     Active Substance: RISANKIZUMAB-RZAA
     Dosage: 2ND INFUSION
     Route: 042
  5. SKYRIZI [Suspect]
     Active Substance: RISANKIZUMAB-RZAA
     Dosage: 3RD INFUSION
     Route: 042

REACTIONS (7)
  - Arthralgia [Unknown]
  - Adverse drug reaction [Unknown]
  - Device effect incomplete [Unknown]
  - Inflammation [Recovering/Resolving]
  - Bradykinesia [Unknown]
  - Adverse reaction [Unknown]
  - Myalgia [Unknown]
